FAERS Safety Report 10736098 (Version 1)
Quarter: 2015Q1

REPORT INFORMATION
  Report Type: Spontaneous
  Country: US (occurrence: None)
  Receive Date: 20150122
  Receipt Date: 20150122
  Transmission Date: 20150721
  Serious: No
  Sender: FDA-Public Use
  Company Number: None

PATIENT
  Age: 71 Year
  Sex: Male
  Weight: 83.92 kg

DRUGS (1)
  1. PROAIR HFA [Suspect]
     Active Substance: ALBUTEROL SULFATE
     Indication: ASTHMA
     Dosage: 2 PUFFS, AS NEEDED, INHALATION
     Route: 055
     Dates: start: 20141015, end: 20150118

REACTIONS (3)
  - Device issue [None]
  - Cough [None]
  - Drug effect decreased [None]

NARRATIVE: CASE EVENT DATE: 20150118
